FAERS Safety Report 20849870 (Version 2)
Quarter: 2022Q2

REPORT INFORMATION
  Report Type: Spontaneous
  Country: ES (occurrence: ES)
  Receive Date: 20220519
  Receipt Date: 20220601
  Transmission Date: 20220720
  Serious: Yes (Hospitalization)
  Sender: FDA-Public Use
  Company Number: ES-TEVA-2022-ES-2037095

PATIENT
  Sex: Male

DRUGS (26)
  1. AMISULPRIDE [Suspect]
     Active Substance: AMISULPRIDE
     Indication: Schizotypal personality disorder
     Dosage: 400 MILLIGRAM DAILY;
     Route: 065
     Dates: start: 1994, end: 201512
  2. AMISULPRIDE [Suspect]
     Active Substance: AMISULPRIDE
     Dosage: 800 MILLIGRAM DAILY;
     Route: 065
     Dates: start: 201512, end: 201604
  3. AMISULPRIDE [Suspect]
     Active Substance: AMISULPRIDE
     Dosage: 600 MILLIGRAM DAILY;
     Route: 065
     Dates: start: 201604, end: 201606
  4. AMISULPRIDE [Suspect]
     Active Substance: AMISULPRIDE
     Dosage: 400 MILLIGRAM DAILY;
     Route: 065
     Dates: start: 201606, end: 201702
  5. FLUOXETINE [Interacting]
     Active Substance: FLUOXETINE HYDROCHLORIDE
     Indication: Schizotypal personality disorder
     Dosage: 20 MILLIGRAM DAILY;
     Route: 065
     Dates: start: 201604, end: 201606
  6. OLANZAPINE [Suspect]
     Active Substance: OLANZAPINE
     Indication: Schizotypal personality disorder
     Dosage: 20 MILLIGRAM DAILY;
     Route: 048
     Dates: start: 201610, end: 201702
  7. OLANZAPINE [Suspect]
     Active Substance: OLANZAPINE
     Indication: Schizoaffective disorder
     Dosage: 20 MILLIGRAM DAILY;
     Route: 048
     Dates: start: 201705, end: 201712
  8. QUETIAPINE [Interacting]
     Active Substance: QUETIAPINE
     Indication: Schizotypal personality disorder
     Dosage: 100 MILLIGRAM DAILY;
     Route: 065
     Dates: start: 201604, end: 201606
  9. CLOBAZAM [Suspect]
     Active Substance: CLOBAZAM
     Indication: Schizotypal personality disorder
     Route: 065
  10. CLOBAZAM [Suspect]
     Active Substance: CLOBAZAM
     Indication: Schizoaffective disorder
  11. VALPROATE [Suspect]
     Active Substance: VALPROIC ACID
     Indication: Schizotypal personality disorder
     Dosage: 500 MILLIGRAM DAILY;
     Route: 065
     Dates: start: 201606, end: 201609
  12. VALPROATE [Suspect]
     Active Substance: VALPROIC ACID
     Dosage: 1000 MILLIGRAM DAILY;
     Route: 065
     Dates: start: 201610, end: 201705
  13. LEVOMEPROMAZINE [Suspect]
     Active Substance: LEVOMEPROMAZINE
     Indication: Schizotypal personality disorder
     Dosage: 100 MILLIGRAM DAILY;
     Route: 065
     Dates: start: 201610, end: 201702
  14. LEVOMEPROMAZINE [Suspect]
     Active Substance: LEVOMEPROMAZINE
     Indication: Schizoaffective disorder
  15. HALOPERIDOL [Suspect]
     Active Substance: HALOPERIDOL
     Indication: Mania
     Route: 065
  16. LITHIUM [Suspect]
     Active Substance: LITHIUM
     Indication: Schizotypal personality disorder
     Dosage: 800 MILLIGRAM DAILY;
     Route: 065
     Dates: start: 1994, end: 201604
  17. LITHIUM [Suspect]
     Active Substance: LITHIUM
     Indication: Suicide attempt
     Dosage: 600 MILLIGRAM DAILY;
     Route: 065
     Dates: start: 201702, end: 201705
  18. LITHIUM [Suspect]
     Active Substance: LITHIUM
     Dosage: 1200 MILLIGRAM DAILY;
     Route: 065
     Dates: start: 201712
  19. ESCITALOPRAM [Concomitant]
     Active Substance: ESCITALOPRAM OXALATE
     Indication: Schizotypal personality disorder
     Dosage: 15 MILLIGRAM DAILY;
     Route: 065
  20. TRAZODONE [Concomitant]
     Active Substance: TRAZODONE HYDROCHLORIDE
     Indication: Schizotypal personality disorder
     Dosage: 200 MILLIGRAM DAILY;
     Route: 065
  21. LORAZEPAM [Concomitant]
     Active Substance: LORAZEPAM
     Indication: Schizotypal personality disorder
     Route: 065
  22. LORMETAZEPAM [Concomitant]
     Active Substance: LORMETAZEPAM
     Indication: Schizotypal personality disorder
     Route: 065
  23. ARIPIPRAZOLE [Concomitant]
     Active Substance: ARIPIPRAZOLE
     Indication: Schizotypal personality disorder
     Dosage: 10 MILLIGRAM DAILY;
     Route: 065
     Dates: start: 201702, end: 201705
  24. ARIPIPRAZOLE [Concomitant]
     Active Substance: ARIPIPRAZOLE
     Route: 065
     Dates: start: 201712
  25. CLONAZEPAM [Concomitant]
     Active Substance: CLONAZEPAM
     Indication: Schizotypal personality disorder
     Route: 065
  26. CITALOPRAM [Concomitant]
     Active Substance: CITALOPRAM HYDROBROMIDE
     Indication: Schizotypal personality disorder
     Route: 065

REACTIONS (9)
  - Extrapyramidal disorder [Unknown]
  - Hyperprolactinaemia [Unknown]
  - Sedation [Unknown]
  - Deep vein thrombosis [Unknown]
  - Drug level increased [Unknown]
  - Toxicity to various agents [Recovered/Resolved]
  - Drug interaction [Unknown]
  - Intentional overdose [Unknown]
  - Drug ineffective [Unknown]

NARRATIVE: CASE EVENT DATE: 20151201
